FAERS Safety Report 10213729 (Version 1)
Quarter: 2014Q2

REPORT INFORMATION
  Report Type: Spontaneous
  Country: US (occurrence: None)
  Receive Date: 20140602
  Receipt Date: 20140602
  Transmission Date: 20141212
  Serious: Yes (Hospitalization, Disabling)
  Sender: FDA-Public Use
  Company Number: None

PATIENT
  Age: 55 Year
  Sex: Female
  Weight: 58.97 kg

DRUGS (1)
  1. QUETIAPINE FUMERATE [Suspect]
     Indication: INSOMNIA
     Dosage: 50 TO 300 MG?AT BEDTIME?TAKEN BY MOUTH
     Route: 048
     Dates: start: 20140202, end: 20140520

REACTIONS (10)
  - Aggression [None]
  - Anger [None]
  - Neck pain [None]
  - Local swelling [None]
  - Joint swelling [None]
  - Joint swelling [None]
  - Musculoskeletal pain [None]
  - Arthralgia [None]
  - Arthralgia [None]
  - Pain in extremity [None]
